FAERS Safety Report 6079329-X (Version None)
Quarter: 2009Q1

REPORT INFORMATION
  Report Type: 
  Country: None (occurrence: None)
  Receive Date: 20090216
  Receipt Date: 20090203
  Transmission Date: 20090719
  Serious: Yes (Hospitalization)
  Sender: FDA-Public Use
  Company Number: JP-PFIZER INC-2009163729

PATIENT

DRUGS (6)
  1. AMLODIPINE BESYLATE [Suspect]
     Indication: HYPERTENSION
     Dosage: UNK
     Route: 048
     Dates: start: 20071119, end: 20081028
  2. AMLODIPINE BESYLATE [Suspect]
     Dosage: UNK
     Route: 048
     Dates: start: 20070210, end: 20070224
  3. AMLODIPINE BESYLATE [Suspect]
     Dosage: UNK
     Route: 048
     Dates: start: 20060912, end: 20060926
  4. VALSARTAN [Suspect]
     Indication: HYPERTENSION
     Dosage: UNK
     Route: 048
     Dates: start: 20071217, end: 20081028
  5. VALSARTAN [Suspect]
     Dosage: UNK
     Route: 048
     Dates: start: 20070121, end: 20070224
  6. VALSARTAN [Suspect]
     Dosage: UNK
     Route: 048
     Dates: start: 20060812, end: 20060926

REACTIONS (1)
  - AGRANULOCYTOSIS [None]
